FAERS Safety Report 20530915 (Version 1)
Quarter: 2022Q1

REPORT INFORMATION
  Report Type: Spontaneous
  Country: US (occurrence: US)
  Receive Date: 20220301
  Receipt Date: 20220301
  Transmission Date: 20220423
  Serious: No
  Sender: FDA-Public Use
  Company Number: US-IGSA-BIG0014202

PATIENT
  Age: 32 Year
  Sex: Female
  Weight: 86 kg

DRUGS (14)
  1. PROLASTIN-C LIQUID [Suspect]
     Active Substance: .ALPHA.1-PROTEINASE INHIBITOR HUMAN
     Indication: Alpha-1 antitrypsin deficiency
     Dosage: 5160 MILLIGRAM, Q.WK.
     Route: 042
     Dates: start: 20210318
  2. IBUPROFEN SODIUM [Concomitant]
     Active Substance: IBUPROFEN SODIUM
  3. ZOFRAN [Concomitant]
     Active Substance: ONDANSETRON HYDROCHLORIDE
  4. UBRELVY [Concomitant]
     Active Substance: UBROGEPANT
  5. PROAIR HFA [Concomitant]
     Active Substance: ALBUTEROL SULFATE
  6. NASONEX [Concomitant]
     Active Substance: MOMETASONE FUROATE
  7. EMGALITY [Concomitant]
     Active Substance: GALCANEZUMAB-GNLM
  8. ENSKYCE [Concomitant]
     Active Substance: DESOGESTREL\ETHINYL ESTRADIOL
  9. SYMBICORT [Concomitant]
     Active Substance: BUDESONIDE\FORMOTEROL FUMARATE DIHYDRATE
  10. LORATADINE [Concomitant]
     Active Substance: LORATADINE
  11. FERROUS SULFATE [Concomitant]
     Active Substance: FERROUS SULFATE
  12. MONTELUKAST [Concomitant]
     Active Substance: MONTELUKAST SODIUM
  13. SERTRALINE [Concomitant]
     Active Substance: SERTRALINE HYDROCHLORIDE
  14. VALTREX [Concomitant]
     Active Substance: VALACYCLOVIR HYDROCHLORIDE

REACTIONS (3)
  - Neuropathy peripheral [Not Recovered/Not Resolved]
  - Skin exfoliation [Not Recovered/Not Resolved]
  - Blister [Not Recovered/Not Resolved]

NARRATIVE: CASE EVENT DATE: 20210409
